FAERS Safety Report 25476478 (Version 2)
Quarter: 2025Q3

REPORT INFORMATION
  Report Type: Spontaneous
  Country: US (occurrence: US)
  Receive Date: 20250625
  Receipt Date: 20250710
  Transmission Date: 20251020
  Serious: Yes (Other)
  Sender: AUROBINDO
  Company Number: US-AUROBINDO-AUR-APL-2025-031469

PATIENT
  Age: 62 Year
  Sex: Female
  Weight: 77.1 kg

DRUGS (1)
  1. PANTOPRAZOLE SODIUM [Suspect]
     Active Substance: PANTOPRAZOLE SODIUM
     Indication: Gastrooesophageal reflux disease
     Dosage: 140 MILLIGRAM, ONCE A DAY [ONE TABLET IN THE MORNING, 140 MILLIGRAMS AS PER THE BOTTLE INSTRUCTIONS]
     Route: 048
     Dates: start: 202405

REACTIONS (5)
  - Neuropathy peripheral [Not Recovered/Not Resolved]
  - Hypoaesthesia [Not Recovered/Not Resolved]
  - Disease recurrence [Not Recovered/Not Resolved]
  - Malaise [Unknown]
  - Alopecia [Unknown]
